FAERS Safety Report 25785140 (Version 1)
Quarter: 2025Q3

REPORT INFORMATION
  Report Type: Spontaneous
  Country: EU (occurrence: EU)
  Receive Date: 20250910
  Receipt Date: 20250910
  Transmission Date: 20251021
  Serious: Yes (Hospitalization)
  Sender: AMGEN
  Company Number: None

PATIENT
  Age: 70 Year
  Sex: Female
  Weight: 95 kg

DRUGS (11)
  1. DENOSUMAB [Suspect]
     Active Substance: DENOSUMAB
     Indication: Osteoporosis
     Dosage: 60 MG PER 6 MONTHS
     Route: 065
     Dates: start: 20220407
  2. POLYETHYLENE GLYCOLS [Concomitant]
     Active Substance: POLYETHYLENE GLYCOLS
     Route: 048
  3. METOPROLOL [Concomitant]
     Active Substance: METOPROLOL
     Route: 048
  4. HYDROCHLOROTHIAZIDE [Concomitant]
     Active Substance: HYDROCHLOROTHIAZIDE
     Route: 048
  5. FLUOXETINE [Concomitant]
     Active Substance: FLUOXETINE HYDROCHLORIDE
     Route: 048
  6. ATORVASTATIN [Concomitant]
     Active Substance: ATORVASTATIN
     Route: 048
  7. QUETIAPINE [Concomitant]
     Active Substance: QUETIAPINE
     Route: 048
  8. QUETIAPINE [Concomitant]
     Active Substance: QUETIAPINE
     Route: 048
  9. MEBEVERINE [Concomitant]
     Active Substance: MEBEVERINE
     Route: 048
  10. Hyaluron [Concomitant]
     Route: 047
  11. CLOMIPRAMINE [Concomitant]
     Active Substance: CLOMIPRAMINE
     Route: 048

REACTIONS (2)
  - Osteonecrosis [Recovering/Resolving]
  - Bone infarction [Recovering/Resolving]
